FAERS Safety Report 5350571-6 (Version None)
Quarter: 2007Q2

REPORT INFORMATION
  Report Type: 
  Country: None (occurrence: None)
  Receive Date: 20070606
  Receipt Date: 20070524
  Transmission Date: 20071010
  Serious: Yes (Hospitalization)
  Sender: FDA-Public Use
  Company Number: 2007SI000469

PATIENT
  Age: 84 Year
  Sex: Male

DRUGS (6)
  1. ROXANOL [Suspect]
     Indication: CANCER PAIN
     Dosage: 1.0 ML; Q2H; INH
     Route: 055
     Dates: start: 20070516, end: 20070522
  2. COREG (CON.) [Concomitant]
  3. AMBIEN (CON.) [Concomitant]
  4. XANAX (CON.) [Concomitant]
  5. DOCUSATE (CON.) [Concomitant]
  6. ALBUTEROL /00139501/ (CON.) [Concomitant]

REACTIONS (1)
  - PNEUMONIA [None]
